FAERS Safety Report 16306506 (Version 2)
Quarter: 2020Q4

REPORT INFORMATION
  Report Type: Spontaneous
  Country: US (occurrence: US)
  Receive Date: 20190513
  Receipt Date: 20201229
  Transmission Date: 20210113
  Serious: Yes (Hospitalization, Other)
  Sender: FDA-Public Use
  Company Number: US-ASTRAZENECA-2019SE67281

PATIENT
  Age: 62 Year
  Sex: Male

DRUGS (55)
  1. NEXIUM [Suspect]
     Active Substance: ESOMEPRAZOLE MAGNESIUM
     Indication: GASTROOESOPHAGEAL REFLUX DISEASE
     Route: 048
     Dates: start: 200504, end: 201808
  2. METOPROLOL SUCCINATE. [Concomitant]
     Active Substance: METOPROLOL SUCCINATE
     Indication: GASTROOESOPHAGEAL REFLUX DISEASE
     Dates: start: 20080107, end: 20080313
  3. CLONIDINE. [Concomitant]
     Active Substance: CLONIDINE
     Indication: DEPRESSION
     Dates: start: 20160929, end: 20180924
  4. HYDROCODONE-ACETAMENOPHEN [Concomitant]
     Indication: BLOOD PRESSURE ABNORMAL
     Dates: start: 20080115, end: 20150311
  5. LABETALOL HCL [Concomitant]
     Active Substance: LABETALOL HYDROCHLORIDE
  6. TESTIM [Concomitant]
     Active Substance: TESTOSTERONE
  7. LANTUS [Concomitant]
     Active Substance: INSULIN GLARGINE
  8. SIMVASTATIN. [Concomitant]
     Active Substance: SIMVASTATIN
  9. CRESTOR [Concomitant]
     Active Substance: ROSUVASTATIN CALCIUM
  10. CYMBALTA [Concomitant]
     Active Substance: DULOXETINE HYDROCHLORIDE
     Indication: GASTROOESOPHAGEAL REFLUX DISEASE
     Dates: start: 20120410, end: 20130910
  11. LEVOTHYROXINE SODIUM. [Concomitant]
     Active Substance: LEVOTHYROXINE SODIUM
     Indication: BLOOD PRESSURE ABNORMAL
     Dates: start: 20130118, end: 20130820
  12. PLAVIX [Concomitant]
     Active Substance: CLOPIDOGREL BISULFATE
  13. COREG [Concomitant]
     Active Substance: CARVEDILOL
  14. FLUCONAZOLE. [Concomitant]
     Active Substance: FLUCONAZOLE
  15. DIAZEPAM. [Concomitant]
     Active Substance: DIAZEPAM
  16. AVODART [Concomitant]
     Active Substance: DUTASTERIDE
  17. FINASTERIDE. [Concomitant]
     Active Substance: FINASTERIDE
  18. CLOPIDOGREL [Concomitant]
     Active Substance: CLOPIDOGREL BISULFATE
  19. NEXIUM [Suspect]
     Active Substance: ESOMEPRAZOLE MAGNESIUM
     Indication: GASTROOESOPHAGEAL REFLUX DISEASE
     Dosage: GENERIC
     Route: 065
     Dates: start: 20150303, end: 20190610
  20. CYMBALTA [Concomitant]
     Active Substance: DULOXETINE HYDROCHLORIDE
     Indication: CARDIOVASCULAR DISORDER
     Dates: start: 20080107, end: 20080407
  21. HYDROCODONE-ACETAMENOPHEN [Concomitant]
     Indication: CARDIOVASCULAR DISORDER
     Dates: start: 20151023, end: 20190613
  22. HYDROCODONE-ACETAMENOPHEN [Concomitant]
     Indication: BLOOD PRESSURE ABNORMAL
     Dates: start: 20151023, end: 20190613
  23. LORAZEPAM. [Concomitant]
     Active Substance: LORAZEPAM
     Indication: THYROID DISORDER
     Dates: start: 20080115, end: 20090104
  24. LORAZEPAM. [Concomitant]
     Active Substance: LORAZEPAM
     Indication: THYROID DISORDER
     Dates: start: 20081003, end: 20081103
  25. TUMS [Concomitant]
     Active Substance: CALCIUM CARBONATE
     Dosage: 9 PER DAY
     Dates: start: 202002
  26. MINOXIDIL. [Concomitant]
     Active Substance: MINOXIDIL
  27. CIALIS [Concomitant]
     Active Substance: TADALAFIL
  28. CIPRODEX [Concomitant]
     Active Substance: CIPROFLOXACIN HYDROCHLORIDE\DEXAMETHASONE
  29. NEXIUM [Suspect]
     Active Substance: ESOMEPRAZOLE MAGNESIUM
     Indication: GASTROOESOPHAGEAL REFLUX DISEASE
     Route: 048
     Dates: start: 20101013, end: 20150112
  30. CYMBALTA [Concomitant]
     Active Substance: DULOXETINE HYDROCHLORIDE
     Indication: GASTROOESOPHAGEAL REFLUX DISEASE
     Dates: start: 20080107, end: 20080407
  31. METOPROLOL SUCCINATE. [Concomitant]
     Active Substance: METOPROLOL SUCCINATE
     Indication: CARDIOVASCULAR DISORDER
     Dates: start: 20080107, end: 20080313
  32. BENICAR [Concomitant]
     Active Substance: OLMESARTAN MEDOXOMIL
     Indication: PAIN
     Dates: start: 20080115, end: 20080410
  33. TRICOR [Concomitant]
     Active Substance: FENOFIBRATE
     Indication: DEPRESSION
     Dates: start: 20090206, end: 20110315
  34. HUMALOG [Concomitant]
     Active Substance: INSULIN LISPRO
  35. LEVAQUIN [Concomitant]
     Active Substance: LEVOFLOXACIN
  36. AMOXICILLIN. [Concomitant]
     Active Substance: AMOXICILLIN
  37. ISOSORBIDE MONONITRATE. [Concomitant]
     Active Substance: ISOSORBIDE MONONITRATE
  38. LASIX [Suspect]
     Active Substance: FUROSEMIDE
     Route: 065
  39. CLONIDINE. [Concomitant]
     Active Substance: CLONIDINE
     Indication: DEPRESSION
     Dates: start: 20080115, end: 20080501
  40. CLONIDINE. [Concomitant]
     Active Substance: CLONIDINE
     Indication: DEPRESSION
     Dates: start: 20190528, end: 20190828
  41. TRICOR [Concomitant]
     Active Substance: FENOFIBRATE
     Indication: DEPRESSION
     Dates: start: 20080129, end: 20080501
  42. ZETIA [Concomitant]
     Active Substance: EZETIMIBE
  43. CARDIZEM [Concomitant]
     Active Substance: DILTIAZEM HYDROCHLORIDE
     Indication: INSOMNIA
     Dates: start: 20080129, end: 20080325
  44. HYDROCODONE-ACETAMENOPHEN [Concomitant]
     Indication: CARDIOVASCULAR DISORDER
     Dates: start: 20080115, end: 20150311
  45. LYRICA [Concomitant]
     Active Substance: PREGABALIN
  46. COMBIVENT [Concomitant]
     Active Substance: ALBUTEROL SULFATE\IPRATROPIUM BROMIDE
  47. CYMBALTA [Concomitant]
     Active Substance: DULOXETINE HYDROCHLORIDE
     Indication: CARDIOVASCULAR DISORDER
     Dates: start: 20120410, end: 20130910
  48. AMBIEN [Concomitant]
     Active Substance: ZOLPIDEM TARTRATE
     Indication: BLOOD PRESSURE ABNORMAL
     Dates: start: 20080129, end: 20091106
  49. CARDIZEM [Concomitant]
     Active Substance: DILTIAZEM HYDROCHLORIDE
     Indication: INSOMNIA
     Dates: start: 20080129, end: 20080325
  50. LORAZEPAM. [Concomitant]
     Active Substance: LORAZEPAM
     Indication: THYROID DISORDER
     Dates: start: 20160415, end: 20190618
  51. ACTOS [Concomitant]
     Active Substance: PIOGLITAZONE HYDROCHLORIDE
  52. EFFEXOR [Concomitant]
     Active Substance: VENLAFAXINE HYDROCHLORIDE
     Indication: ANXIETY
     Dates: start: 20080129, end: 20080501
  53. TRICOR [Concomitant]
     Active Substance: FENOFIBRATE
     Indication: DEPRESSION
     Dates: start: 20120717, end: 20121104
  54. VYTORIN [Concomitant]
     Active Substance: EZETIMIBE\SIMVASTATIN
  55. FLOMAX [Concomitant]
     Active Substance: TAMSULOSIN HYDROCHLORIDE

REACTIONS (2)
  - Acute kidney injury [Unknown]
  - Chronic kidney disease [Not Recovered/Not Resolved]

NARRATIVE: CASE EVENT DATE: 2019
